FAERS Safety Report 7034736-3 (Version None)
Quarter: 2010Q4

REPORT INFORMATION
  Report Type: 
  Country: None (occurrence: None)
  Receive Date: 20101008
  Receipt Date: 20100928
  Transmission Date: 20110411
  Serious: No
  Sender: FDA-Public Use
  Company Number: PHEH2008US07126

PATIENT
  Sex: Female

DRUGS (8)
  1. TASIGNA [Suspect]
     Indication: CHRONIC MYELOID LEUKAEMIA
     Dosage: 400 MG, BID
     Route: 048
     Dates: start: 20080728
  2. VERAPAMIL [Concomitant]
     Indication: HYPERTENSION
  3. BIOTIN [Concomitant]
  4. FISH OIL [Concomitant]
  5. MULTI-VITAMINS [Concomitant]
  6. CALCIUM [Concomitant]
  7. ESTER-C [Concomitant]
  8. FLAXSEED OIL [Concomitant]

REACTIONS (9)
  - DIARRHOEA [None]
  - DIZZINESS [None]
  - DYSPEPSIA [None]
  - FATIGUE [None]
  - FEELING ABNORMAL [None]
  - HEADACHE [None]
  - HYPOAESTHESIA [None]
  - INAPPROPRIATE SCHEDULE OF DRUG ADMINISTRATION [None]
  - TREATMENT NONCOMPLIANCE [None]
